FAERS Safety Report 16171787 (Version 3)
Quarter: 2019Q2

REPORT INFORMATION
  Report Type: Report from Study
  Country: None (occurrence: NL)
  Receive Date: 20190408
  Receipt Date: 20190618
  Transmission Date: 20190711
  Serious: Yes (Hospitalization)
  Sender: FDA-Public Use
  Company Number: NL-ABBVIE-19S-114-2733715-00

PATIENT
  Age: 74 Year
  Sex: Male
  Weight: 70 kg

DRUGS (3)
  1. DUODOPA [Suspect]
     Active Substance: CARBIDOPA\LEVODOPA
     Indication: MULTIPLE SYSTEM ATROPHY
     Dosage: MDD 15.5 ML, CDD 2.8 ML, EDD 2.0 ML
     Route: 050
  2. DUODOPA [Suspect]
     Active Substance: CARBIDOPA\LEVODOPA
     Indication: PARKINSON^S DISEASE
     Dosage: MD 12.5, ED 2.0, CD 2.6
     Route: 050
     Dates: start: 20180730
  3. DUODOPA [Suspect]
     Active Substance: CARBIDOPA\LEVODOPA
     Dosage: MD 10 CD 2.6 ED 2
     Route: 050

REACTIONS (11)
  - Parkinsonism [Recovered/Resolved]
  - Stoma site reaction [Recovering/Resolving]
  - Faecaloma [Not Recovered/Not Resolved]
  - Therapeutic product effect incomplete [Not Recovered/Not Resolved]
  - Dyspnoea [Not Recovered/Not Resolved]
  - Weight decreased [Recovered/Resolved]
  - Abdominal distension [Not Recovered/Not Resolved]
  - Condition aggravated [Not Recovered/Not Resolved]
  - Constipation [Recovered/Resolved]
  - Multiple system atrophy [Not Recovered/Not Resolved]
  - Fibroma [Not Recovered/Not Resolved]

NARRATIVE: CASE EVENT DATE: 20190215
